FAERS Safety Report 17721077 (Version 5)
Quarter: 2020Q2

REPORT INFORMATION
  Report Type: Spontaneous
  Country: DE (occurrence: DE)
  Receive Date: 20200428
  Receipt Date: 20200624
  Transmission Date: 20200714
  Serious: Yes (Hospitalization, Other)
  Sender: FDA-Public Use
  Company Number: DE-BRISTOL-MYERS SQUIBB COMPANY-BMS-2020-033648

PATIENT
  Age: 56 Year
  Sex: Male
  Weight: 85 kg

DRUGS (6)
  1. OPDIVO [Suspect]
     Active Substance: NIVOLUMAB
     Indication: PRODUCT USED FOR UNKNOWN INDICATION
     Dosage: 90 MILLIGRAM
     Route: 042
     Dates: start: 20200327
  2. OPDIVO [Suspect]
     Active Substance: NIVOLUMAB
     Indication: PRODUCT USED FOR UNKNOWN INDICATION
     Dosage: 90 MILLIGRAM
     Route: 042
     Dates: start: 20200428
  3. OPDIVO [Suspect]
     Active Substance: NIVOLUMAB
     Indication: MALIGNANT MELANOMA
     Dosage: 90 MILLIGRAM
     Route: 042
     Dates: start: 20200306
  4. YERVOY [Suspect]
     Active Substance: IPILIMUMAB
     Indication: MALIGNANT MELANOMA
     Dosage: 270 MILLIGRAM
     Route: 042
     Dates: start: 20200306
  5. YERVOY [Suspect]
     Active Substance: IPILIMUMAB
     Indication: PRODUCT USED FOR UNKNOWN INDICATION
     Dosage: 270 MILLIGRAM
     Route: 042
     Dates: start: 20200327
  6. YERVOY [Suspect]
     Active Substance: IPILIMUMAB
     Indication: PRODUCT USED FOR UNKNOWN INDICATION
     Dosage: 270 MILLIGRAM
     Route: 042
     Dates: start: 20200428

REACTIONS (4)
  - Cytokine release syndrome [Recovering/Resolving]
  - Prescribed overdose [Unknown]
  - Restless legs syndrome [Unknown]
  - Autoimmune colitis [Unknown]

NARRATIVE: CASE EVENT DATE: 20200404
